FAERS Safety Report 8704332 (Version 2)
Quarter: 2013Q4

REPORT INFORMATION
  Report Type: Spontaneous
  Country: US (occurrence: US)
  Receive Date: 20120803
  Receipt Date: 20131101
  Transmission Date: 20140711
  Serious: No
  Sender: FDA-Public Use
  Company Number: US-009507513-1207USA012498

PATIENT
  Age: 34 Year
  Sex: 0

DRUGS (1)
  1. PROPECIA [Suspect]
     Indication: ALOPECIA
     Dosage: 1 MG, QD
     Route: 048
     Dates: end: 201101

REACTIONS (2)
  - Penis disorder [Not Recovered/Not Resolved]
  - Libido decreased [Not Recovered/Not Resolved]
